FAERS Safety Report 11585956 (Version 3)
Quarter: 2016Q4

REPORT INFORMATION
  Report Type: Spontaneous
  Country: US (occurrence: US)
  Receive Date: 20151001
  Receipt Date: 20161123
  Transmission Date: 20170206
  Serious: Yes (Hospitalization)
  Sender: FDA-Public Use
  Company Number: US-BAYER-2015-429989

PATIENT
  Age: 80 Year
  Sex: Female
  Weight: 82 kg

DRUGS (1)
  1. ALEVE [Suspect]
     Active Substance: NAPROXEN SODIUM
     Indication: SCIATICA
     Dosage: 2 DF, TID
     Route: 048
     Dates: start: 200210, end: 200211

REACTIONS (3)
  - Ulcer haemorrhage [None]
  - Product use issue [None]
  - Wrong technique in product usage process [None]

NARRATIVE: CASE EVENT DATE: 200210
